FAERS Safety Report 10502964 (Version 1)
Quarter: 2014Q4

REPORT INFORMATION
  Report Type: Spontaneous
  Country: AU (occurrence: AU)
  Receive Date: 20141007
  Receipt Date: 20141007
  Transmission Date: 20150528
  Serious: Yes (Death, Other)
  Sender: FDA-Public Use
  Company Number: PHHY2014AU130559

PATIENT
  Age: 44 Year
  Sex: Female

DRUGS (3)
  1. IBUPROFEN. [Suspect]
     Active Substance: IBUPROFEN
     Indication: PRODUCT USED FOR UNKNOWN INDICATION
     Route: 065
  2. FUROSEMIDE. [Suspect]
     Active Substance: FUROSEMIDE
     Indication: PRODUCT USED FOR UNKNOWN INDICATION
     Route: 065
  3. DULOXETINE [Interacting]
     Active Substance: DULOXETINE
     Indication: PRODUCT USED FOR UNKNOWN INDICATION
     Route: 065

REACTIONS (7)
  - Endometriosis [Unknown]
  - Colitis ischaemic [Unknown]
  - Splenomegaly [Unknown]
  - Intestinal ischaemia [Fatal]
  - Toxicity to various agents [Fatal]
  - Hepatic cirrhosis [Unknown]
  - Drug interaction [Unknown]
